FAERS Safety Report 8477917-4 (Version None)
Quarter: 2012Q2

REPORT INFORMATION
  Report Type: 
  Country: None (occurrence: None)
  Receive Date: 20120629
  Receipt Date: 20120627
  Transmission Date: 20120825
  Serious: Yes (Hospitalization)
  Sender: FDA-Public Use
  Company Number: IT-PFIZER INC-2012154592

PATIENT
  Sex: Male

DRUGS (1)
  1. CISPLATIN [Suspect]
     Dosage: UNK

REACTIONS (2)
  - STOMATITIS [None]
  - FEBRILE NEUTROPENIA [None]
